FAERS Safety Report 21143821 (Version 1)
Quarter: 2022Q3

REPORT INFORMATION
  Report Type: Spontaneous
  Country: US (occurrence: None)
  Receive Date: 20220728
  Receipt Date: 20220728
  Transmission Date: 20221027
  Serious: Yes (Other)
  Sender: FDA-Public Use
  Company Number: US-Hikma Pharmaceuticals USA Inc.-US-H14001-22-01863

PATIENT
  Sex: Female

DRUGS (1)
  1. PREDNISONE [Suspect]
     Active Substance: PREDNISONE
     Indication: Systemic lupus erythematosus
     Dosage: UNKNOWN
     Route: 065

REACTIONS (17)
  - Abdominal discomfort [Unknown]
  - Abdominal pain upper [Unknown]
  - Systemic lupus erythematosus [Unknown]
  - Fatigue [Unknown]
  - Peripheral swelling [Unknown]
  - Ulcer [Unknown]
  - Stomatitis [Unknown]
  - Arthralgia [Unknown]
  - Alopecia [Unknown]
  - Rash [Unknown]
  - Joint swelling [Unknown]
  - Anxiety [Unknown]
  - Migraine [Unknown]
  - Oral herpes [Unknown]
  - Headache [Unknown]
  - Drug ineffective [Unknown]
  - Adverse event [Unknown]
